FAERS Safety Report 5654666-9 (Version None)
Quarter: 2008Q1

REPORT INFORMATION
  Report Type: 
  Country: None (occurrence: None)
  Receive Date: 20080219
  Receipt Date: 20071023
  Transmission Date: 20080703
  Serious: No
  Sender: FDA-Public Use
  Company Number: WAES 0710USA05121

PATIENT
  Age: 53 Year
  Sex: Female
  Weight: 88.905 kg

DRUGS (8)
  1. JANUVIA [Suspect]
     Indication: DIABETES MELLITUS
     Dosage: 100MG/DAILY/PO
     Route: 048
     Dates: start: 20070712, end: 20070723
  2. ADVAIR DISKUS 100/50 [Concomitant]
  3. BYETTA [Concomitant]
  4. DILTIAZEM HYDROCHLORIDE [Concomitant]
  5. GUAIFENSIN [Concomitant]
  6. HYDROCHLOROTHIAZIDE (+) LISINOPR [Concomitant]
  7. LEVOTHYROXINE SODIUM [Concomitant]
  8. METFORMIN [Concomitant]

REACTIONS (3)
  - BLOOD GLUCOSE INCREASED [None]
  - HEADACHE [None]
  - VISION BLURRED [None]
